FAERS Safety Report 6108044-9 (Version None)
Quarter: 2009Q1

REPORT INFORMATION
  Report Type: 
  Country: None (occurrence: None)
  Receive Date: 20090304
  Receipt Date: 20071212
  Transmission Date: 20090719
  Serious: Yes (Hospitalization, Other)
  Sender: FDA-Public Use
  Company Number: BDI-010713

PATIENT
  Age: 65 Year
  Sex: Male

DRUGS (5)
  1. ISOVUE-300 [Suspect]
     Indication: ANGIOPLASTY
     Dosage: 60ML QD
  2. ISOVUE-300 [Suspect]
     Indication: THROMBECTOMY
     Dosage: 60ML QD
  3. FENTANYL-100 [Concomitant]
  4. LIDOCAINE [Concomitant]
  5. MIDAZOLAM HCL [Concomitant]

REACTIONS (1)
  - HYPERSENSITIVITY [None]
